FAERS Safety Report 8992842 (Version 2)
Quarter: 2013Q1

REPORT INFORMATION
  Report Type: Spontaneous
  Country: US (occurrence: US)
  Receive Date: 20130102
  Receipt Date: 20130115
  Transmission Date: 20140127
  Serious: No
  Sender: FDA-Public Use
  Company Number: US-009507513-1210USA012992

PATIENT
  Sex: Male

DRUGS (4)
  1. VICTRELIS [Suspect]
     Indication: HEPATITIS C
     Dosage: 800 MG, Q8H
     Route: 048
  2. PEGASYS [Suspect]
     Dosage: 180 MICROGRAM, QW
     Route: 048
  3. PEGASYS [Suspect]
     Dosage: 135 MICROGRAM, QW
     Route: 048
  4. RIBASPHERE [Suspect]
     Dosage: 3 TABLETS IN MORNING, 3 TABLETS IN EVENING
     Route: 048

REACTIONS (5)
  - Lethargy [Unknown]
  - Nausea [Unknown]
  - Diarrhoea [Unknown]
  - White blood cell count decreased [Unknown]
  - Platelet count decreased [Unknown]
